FAERS Safety Report 5728466-5 (Version None)
Quarter: 2008Q2

REPORT INFORMATION
  Report Type: 
  Country: None (occurrence: None)
  Receive Date: 20080502
  Receipt Date: 20080502
  Transmission Date: 20081010
  Serious: No
  Sender: FDA-Public Use
  Company Number: None

PATIENT
  Age: 53 Year
  Sex: Male

DRUGS (13)
  1. ROCEPHIN [Suspect]
     Dates: start: 20050815, end: 20050818
  2. AZITHROMYCIN [Suspect]
     Dates: start: 20050815, end: 20050818
  3. EFFEXOR [Concomitant]
  4. BUSPIRONE HCL [Concomitant]
  5. CLONAZEPAM [Concomitant]
  6. RITALIN [Concomitant]
  7. GABAPENTIN [Concomitant]
  8. LIPITOR [Concomitant]
  9. QUININE SULFATE [Concomitant]
  10. ALEVE [Concomitant]
  11. ACETAMINOPHEN [Concomitant]
  12. CENTRUM SILVER MULTIVITAMIN [Concomitant]
  13. VITAMIN B12 NATURE MADE [Concomitant]

REACTIONS (11)
  - ACUTE MYOCARDIAL INFARCTION [None]
  - BLOOD CULTURE POSITIVE [None]
  - CARDIAC ARREST [None]
  - CARDIOMEGALY [None]
  - CORONARY ARTERY DISEASE [None]
  - ENDOCARDIAL FIBROSIS [None]
  - HEPATITIS ACUTE [None]
  - LEFT VENTRICULAR HYPERTROPHY [None]
  - LIVER INJURY [None]
  - PNEUMONIA [None]
  - STAPHYLOCOCCAL IDENTIFICATION TEST POSITIVE [None]
